FAERS Safety Report 22087878 (Version 3)
Quarter: 2023Q2

REPORT INFORMATION
  Report Type: Spontaneous
  Country: JP (occurrence: JP)
  Receive Date: 20230313
  Receipt Date: 20230601
  Transmission Date: 20230721
  Serious: Yes (Hospitalization, Other)
  Sender: FDA-Public Use
  Company Number: JP-MSD-M2023-08921

PATIENT
  Age: 68 Year
  Sex: Male
  Weight: 48 kg

DRUGS (16)
  1. KEYTRUDA [Suspect]
     Active Substance: PEMBROLIZUMAB
     Indication: Oesophageal carcinoma
     Dosage: 200 MILLIGRAM, Q3W
     Route: 041
     Dates: start: 20220712, end: 20221109
  2. PACLITAXEL [Concomitant]
     Active Substance: PACLITAXEL
     Indication: Oesophageal carcinoma
     Dosage: 140 MILLIGRAM, 6 TIMES
     Route: 051
     Dates: start: 20221212, end: 20230217
  3. FLUOROURACIL [Concomitant]
     Active Substance: FLUOROURACIL
     Indication: Oesophageal carcinoma
     Dosage: 1150 MILLIGRAM, ONCE X 5 DAYS
     Route: 065
     Dates: start: 20220712, end: 2022
  4. FLUOROURACIL [Concomitant]
     Active Substance: FLUOROURACIL
     Dosage: 1150 MILLIGRAM
     Route: 065
     Dates: start: 2022, end: 2022
  5. FLUOROURACIL [Concomitant]
     Active Substance: FLUOROURACIL
     Dosage: 1150 MILLIGRAM
     Route: 065
     Dates: start: 2022, end: 2022
  6. FLUOROURACIL [Concomitant]
     Active Substance: FLUOROURACIL
     Dosage: 1150 MILLIGRAM, ONCE X 5 DAYS
     Route: 065
     Dates: start: 2022, end: 20221109
  7. CISPLATIN [Concomitant]
     Active Substance: CISPLATIN
     Indication: Oesophageal carcinoma
     Dosage: 118 MILLIGRAM, QD
     Route: 065
     Dates: start: 20220712, end: 20220712
  8. CISPLATIN [Concomitant]
     Active Substance: CISPLATIN
     Dosage: 74 MILLIGRAM, QD
     Route: 065
     Dates: start: 2022, end: 2022
  9. CISPLATIN [Concomitant]
     Active Substance: CISPLATIN
     Dosage: 50 MILLIGRAM, QD
     Route: 065
     Dates: start: 2022, end: 2022
  10. CISPLATIN [Concomitant]
     Active Substance: CISPLATIN
     Dosage: 50 MILLIGRAM, QD
     Route: 065
     Dates: start: 20221109, end: 20221109
  11. ADETPHOS [Concomitant]
     Active Substance: ADENOSINE TRIPHOSPHATE
     Dosage: 100 MILLIGRAM, TID
     Route: 065
  12. METHYLCOBALAMIN [Concomitant]
     Active Substance: METHYLCOBALAMIN
     Dosage: 500 MICROGRAM, TID
     Route: 065
  13. BERAPROST SODIUM [Concomitant]
     Active Substance: BERAPROST SODIUM
     Dosage: 20 MICROGRAM, TID
     Route: 065
  14. HERBALS [Concomitant]
     Active Substance: HERBALS
     Dosage: 4.05 GRAM, BID
     Route: 065
  15. LANSOPRAZOLE [Concomitant]
     Active Substance: LANSOPRAZOLE
     Dosage: 15 MILLIGRAM, QD
     Route: 065
  16. URSODIOL [Concomitant]
     Active Substance: URSODIOL
     Dosage: 200 MILLIGRAM, TID
     Route: 065

REACTIONS (5)
  - Progressive cerebellar degeneration [Not Recovered/Not Resolved]
  - Spinocerebellar disorder [Unknown]
  - Immune-mediated myasthenia gravis [Unknown]
  - Gait disturbance [Unknown]
  - Dysarthria [Unknown]

NARRATIVE: CASE EVENT DATE: 20230222
